FAERS Safety Report 25291866 (Version 1)
Quarter: 2025Q2

REPORT INFORMATION
  Report Type: Spontaneous
  Country: US (occurrence: US)
  Receive Date: 20250510
  Receipt Date: 20250510
  Transmission Date: 20250716
  Serious: No
  Sender: SANOFI AVENTIS
  Company Number: US-SANOFI-02498320

PATIENT
  Sex: Female

DRUGS (13)
  1. DUPIXENT [Suspect]
     Active Substance: DUPILUMAB
     Indication: Polycystic ovarian syndrome
  2. DUPIXENT [Suspect]
     Active Substance: DUPILUMAB
     Indication: Hypogammaglobulinaemia
  3. DUPIXENT [Suspect]
     Active Substance: DUPILUMAB
     Indication: Metabolic syndrome
  4. DUPIXENT [Suspect]
     Active Substance: DUPILUMAB
     Indication: Insulin resistance
  5. DUPIXENT [Suspect]
     Active Substance: DUPILUMAB
     Indication: Mania
  6. DUPIXENT [Suspect]
     Active Substance: DUPILUMAB
     Indication: Rehabilitation therapy
  7. DUPIXENT [Suspect]
     Active Substance: DUPILUMAB
     Indication: Psychophysiologic insomnia
  8. DUPIXENT [Suspect]
     Active Substance: DUPILUMAB
     Indication: Weight loss poor
  9. DUPIXENT [Suspect]
     Active Substance: DUPILUMAB
     Indication: Peripheral nerve lesion
  10. DUPIXENT [Suspect]
     Active Substance: DUPILUMAB
     Indication: Eustachian tube disorder
  11. DUPIXENT [Suspect]
     Active Substance: DUPILUMAB
     Indication: Asthma
  12. DUPIXENT [Suspect]
     Active Substance: DUPILUMAB
     Indication: Impaired gastric emptying
  13. DUPIXENT [Suspect]
     Active Substance: DUPILUMAB
     Indication: Abdominal pain

REACTIONS (1)
  - Off label use [Unknown]
